FAERS Safety Report 5292023-8 (Version None)
Quarter: 2007Q2

REPORT INFORMATION
  Report Type: 
  Country: None (occurrence: None)
  Receive Date: 20070410
  Receipt Date: 20070330
  Transmission Date: 20071010
  Serious: Yes (Hospitalization)
  Sender: FDA-Public Use
  Company Number: US-JNJFOC-20061005833

PATIENT
  Sex: Female
  Weight: 70.31 kg

DRUGS (4)
  1. TOPAMAX [Suspect]
     Route: 048
  2. TOPAMAX [Suspect]
     Indication: MIGRAINE PROPHYLAXIS
     Route: 048
  3. FOSAMAX [Concomitant]
  4. NASAL SPRAY [Concomitant]
     Indication: OSTEOPOROSIS
     Route: 055

REACTIONS (5)
  - BACK PAIN [None]
  - NEPHROLITHIASIS [None]
  - SEPSIS [None]
  - URETHRAL STENOSIS [None]
  - URINARY TRACT INFECTION [None]
